FAERS Safety Report 5968402-X (Version None)
Quarter: 2008Q4

REPORT INFORMATION
  Report Type: 
  Country: None (occurrence: None)
  Receive Date: 20081126
  Receipt Date: 20081124
  Transmission Date: 20090506
  Serious: Yes (Hospitalization)
  Sender: FDA-Public Use
  Company Number: IT-BRISTOL-MYERS SQUIBB COMPANY-14404586

PATIENT
  Age: 28 Year
  Sex: Male

DRUGS (2)
  1. BARACLUDE [Suspect]
     Indication: HEPATITIS B
     Dosage: DRUG INTERRUPTED ON 11NOV08
     Route: 048
     Dates: start: 20080901, end: 20081111
  2. GLIBOMET [Suspect]
     Indication: DIABETES MELLITUS
     Dosage: FORMULATION: TABLETS
     Route: 048
     Dates: start: 20080501, end: 20081111

REACTIONS (3)
  - BLOOD TRIGLYCERIDES INCREASED [None]
  - LACTIC ACIDOSIS [None]
  - PANCREATITIS ACUTE [None]
